FAERS Safety Report 9140725 (Version 2)
Quarter: 2014Q2

REPORT INFORMATION
  Report Type: Report from Study
  Country: US (occurrence: US)
  Receive Date: 20130305
  Receipt Date: 20140310
  Transmission Date: 20141212
  Serious: Yes (Other)
  Sender: FDA-Public Use
  Company Number: US-ALEXION PHARMACEUTICALS INC.-A201300336

PATIENT
  Age: 78 Year
  Sex: Female
  Weight: 77 kg

DRUGS (8)
  1. SOLIRIS [Suspect]
     Indication: PAROXYSMAL NOCTURNAL HAEMOGLOBINURIA
     Dosage: 900 MG, Q2W
     Route: 042
     Dates: start: 20071030
  2. SOLIRIS [Suspect]
     Dosage: 600 MG, QW X 4 WEEKS
     Route: 042
     Dates: start: 20071002, end: 20071023
  3. ALLEGRA [Concomitant]
     Dosage: UNK
  4. COUMADIN [Concomitant]
     Dosage: UNK
  5. PLAVIX [Concomitant]
     Dosage: UNK
  6. LASIX [Concomitant]
     Dosage: UNK
  7. METOPROLOL [Concomitant]
     Dosage: UNK
  8. TRENTAL [Concomitant]
     Dosage: UNK

REACTIONS (5)
  - Soft tissue injury [Not Recovered/Not Resolved]
  - Road traffic accident [Recovered/Resolved]
  - Pain [Unknown]
  - Joint range of motion decreased [Unknown]
  - Fatigue [Unknown]
